FAERS Safety Report 6197213-8 (Version None)
Quarter: 2009Q2

REPORT INFORMATION
  Report Type: 
  Country: None (occurrence: None)
  Receive Date: 20090521
  Receipt Date: 20071218
  Transmission Date: 20091009
  Serious: Yes (Hospitalization, Other)
  Sender: FDA-Public Use
  Company Number: US-ASTRAZENECA-2006UW24745

PATIENT
  Age: 19953 Day
  Sex: Male

DRUGS (18)
  1. SEROQUEL [Suspect]
     Indication: DEPRESSION
     Dosage: 25-100 MG
     Route: 048
     Dates: start: 20020127, end: 20050912
  2. ULTRAM [Concomitant]
     Indication: PAIN
     Route: 048
  3. CELEXA [Concomitant]
     Dosage: 40-60 MG
     Route: 048
  4. ZANAFLEX [Concomitant]
     Indication: MUSCLE SPASMS
     Route: 048
  5. ENDOCET [Concomitant]
     Indication: PAIN
     Dosage: 5/325 MG EVERY 12 HOURS, 5/325 MG FOUR TIMES DAILY
     Route: 048
  6. CARISOPRODOL [Concomitant]
     Route: 048
  7. REMERON [Concomitant]
     Route: 048
  8. CLONAZEPAM [Concomitant]
     Dosage: 0.5-3 MG
     Route: 048
  9. AMARYL [Concomitant]
     Dosage: 2-4 MG
     Route: 048
  10. METFORMIN HCL [Concomitant]
     Route: 048
  11. TRICOR [Concomitant]
     Dosage: 48-54 MG
     Route: 048
  12. AMITRIPTLINE HYDROCHLORIDE TAB [Concomitant]
     Indication: INSOMNIA
     Route: 048
  13. FERROUS SULFATE TAB [Concomitant]
     Indication: ANAEMIA
     Dosage: 5 GR TWICE DAILY
     Route: 048
  14. ACTOS [Concomitant]
     Route: 048
  15. PREVACID [Concomitant]
     Route: 048
  16. ALPRAZOLAM [Concomitant]
     Route: 048
  17. ZYPREXA [Concomitant]
     Route: 048
     Dates: start: 20020515, end: 20020603
  18. GLUCOTROL XL [Concomitant]
     Route: 048

REACTIONS (12)
  - ARTHRALGIA [None]
  - BLOOD GLUCOSE INCREASED [None]
  - DIABETES MELLITUS [None]
  - FUNGAL INFECTION [None]
  - HALLUCINATIONS, MIXED [None]
  - HEPATIC CIRRHOSIS [None]
  - LIVER DISORDER [None]
  - PAIN IN EXTREMITY [None]
  - PSYCHOTIC DISORDER [None]
  - SLEEP DISORDER [None]
  - STRESS [None]
  - TONGUE HAEMORRHAGE [None]
